FAERS Safety Report 7921779-8 (Version None)
Quarter: 2011Q4

REPORT INFORMATION
  Report Type: 
  Country: None (occurrence: None)
  Receive Date: 20111117
  Receipt Date: 20111111
  Transmission Date: 20120403
  Serious: Yes (Hospitalization)
  Sender: FDA-Public Use
  Company Number: JP-GLAXOSMITHKLINE-B0762472A

PATIENT
  Age: 75 Year
  Sex: Male
  Weight: 80 kg

DRUGS (14)
  1. MEFENAMIC ACID [Concomitant]
     Route: 048
  2. BUP-4 [Concomitant]
     Dosage: 1IUAX PER DAY
     Route: 048
  3. BUFFERIN [Concomitant]
     Route: 048
  4. PAXIL [Suspect]
     Dosage: 30MG PER DAY
     Route: 048
     Dates: start: 20110701, end: 20110920
  5. PAXIL [Suspect]
     Indication: DEPRESSION
     Dosage: 20MG PER DAY
     Route: 048
     Dates: start: 20090701, end: 20110701
  6. SULTIMIN [Concomitant]
     Dosage: 1IUAX PER DAY
     Route: 048
     Dates: end: 20110901
  7. LANSOPRAZOLE [Concomitant]
     Dosage: 1IUAX PER DAY
     Route: 048
     Dates: end: 20110901
  8. TICLOPIDINE HCL [Concomitant]
     Dosage: 1IUAX PER DAY
     Route: 048
     Dates: end: 20110901
  9. LEVOFLOXACIN [Concomitant]
     Dosage: 1IUAX PER DAY
     Route: 048
     Dates: end: 20110901
  10. TAMSULOSIN HYDROCHLORIDE [Concomitant]
     Dosage: 1IUAX PER DAY
     Route: 048
     Dates: end: 20110901
  11. PAXIL [Suspect]
     Dosage: 40MG PER DAY
     Route: 048
     Dates: start: 20110921
  12. ALLOPURINOL [Concomitant]
     Dosage: 1IUAX PER DAY
     Route: 048
     Dates: end: 20110901
  13. MAGNESIUM SULFATE [Concomitant]
     Dosage: 6IUAX PER DAY
     Route: 048
     Dates: end: 20110901
  14. U PAN [Concomitant]
     Route: 048

REACTIONS (7)
  - BLOOD CREATINE PHOSPHOKINASE INCREASED [None]
  - PYREXIA [None]
  - MYOGLOBINURIA [None]
  - GLOMERULAR FILTRATION RATE DECREASED [None]
  - URINE OUTPUT DECREASED [None]
  - NEUROLEPTIC MALIGNANT SYNDROME [None]
  - RENAL IMPAIRMENT [None]
